FAERS Safety Report 9112781 (Version 1)
Quarter: 2013Q1

REPORT INFORMATION
  Report Type: Spontaneous
  Country: FR (occurrence: FR)
  Receive Date: 20130211
  Receipt Date: 20130211
  Transmission Date: 20140127
  Serious: Yes (Life-Threatening, Hospitalization)
  Sender: FDA-Public Use
  Company Number: FR-ELI_LILLY_AND_COMPANY-FR201302001346

PATIENT
  Age: 71 Year
  Sex: Male

DRUGS (3)
  1. EFIENT [Suspect]
     Dosage: 10 MG, QD
     Route: 048
     Dates: start: 20121012, end: 20121027
  2. ASPERGIC [Concomitant]
     Dosage: 75 MG, QD
     Route: 048
     Dates: start: 2008, end: 20121027
  3. COUMADINE [Concomitant]
     Dosage: UNK
     Route: 048
     Dates: end: 20121027

REACTIONS (2)
  - Small intestinal obstruction [Not Recovered/Not Resolved]
  - Intestinal haematoma [Not Recovered/Not Resolved]
